FAERS Safety Report 15616251 (Version 1)
Quarter: 2018Q4

REPORT INFORMATION
  Report Type: Spontaneous
  Country: BR (occurrence: BR)
  Receive Date: 20181114
  Receipt Date: 20181114
  Transmission Date: 20190205
  Serious: Yes (Hospitalization)
  Sender: FDA-Public Use
  Company Number: BR-MYLANLABS-2018M1083800

PATIENT
  Age: 49 Year
  Sex: Male

DRUGS (6)
  1. PREDNISONE. [Suspect]
     Active Substance: PREDNISONE
     Indication: PALMAR-PLANTAR ERYTHRODYSAESTHESIA SYNDROME
     Route: 048
  2. RIBAVIRIN. [Suspect]
     Active Substance: RIBAVIRIN
     Indication: HEPATITIS C
     Dosage: INITIAL TREATMENT; PLANNED FOR 12 WEEKS.
     Route: 048
  3. RIBAVIRIN. [Suspect]
     Active Substance: RIBAVIRIN
     Dosage: DOSE REDUCED AT SIXTH WEEK OF TREATMENT.
     Route: 048
  4. SOFOSBUVIR [Suspect]
     Active Substance: SOFOSBUVIR
     Indication: HEPATITIS C
     Route: 048
  5. SIMEPREVIR [Suspect]
     Active Substance: SIMEPREVIR
     Indication: HEPATITIS C
     Route: 048
  6. CEPHALEXIN                         /00145501/ [Suspect]
     Active Substance: CEPHALEXIN
     Indication: PALMAR-PLANTAR ERYTHRODYSAESTHESIA SYNDROME
     Route: 065

REACTIONS (1)
  - Drug ineffective [Unknown]
